FAERS Safety Report 23635099 (Version 1)
Quarter: 2024Q1

REPORT INFORMATION
  Report Type: Report from Study
  Country: CA (occurrence: CA)
  Receive Date: 20240315
  Receipt Date: 20240315
  Transmission Date: 20240410
  Serious: Yes (Death)
  Sender: FDA-Public Use
  Company Number: CA-E2BLSMVVAL-CLI/CAN/24/0004003

PATIENT
  Age: 71 Year
  Sex: Male

DRUGS (1)
  1. ABIRATERONE [Suspect]
     Active Substance: ABIRATERONE
     Indication: Prostate cancer metastatic
     Dosage: 120 COUNT
     Route: 048
     Dates: start: 20220408

REACTIONS (1)
  - Death [Fatal]
